FAERS Safety Report 13450223 (Version 1)
Quarter: 2017Q2

REPORT INFORMATION
  Report Type: Spontaneous
  Country: US (occurrence: US)
  Receive Date: 20170417
  Receipt Date: 20170417
  Transmission Date: 20170830
  Serious: No
  Sender: FDA-Public Use
  Company Number: US-BIOMARINAP-US-2017-113653

PATIENT
  Sex: Female

DRUGS (1)
  1. KUVAN [Suspect]
     Active Substance: SAPROPTERIN DIHYDROCHLORIDE
     Indication: AMINO ACID METABOLISM DISORDER
     Dosage: 500 MG, QD
     Route: 048
     Dates: start: 20141227, end: 20170411

REACTIONS (7)
  - Irritability [Unknown]
  - Faeces discoloured [Unknown]
  - Pharyngitis [Unknown]
  - Stomatitis [Unknown]
  - Oral pain [Unknown]
  - Insomnia [Unknown]
  - Dysgeusia [Unknown]
